FAERS Safety Report 19632345 (Version 2)
Quarter: 2021Q3

REPORT INFORMATION
  Report Type: Spontaneous
  Country: US (occurrence: US)
  Receive Date: 20210729
  Receipt Date: 20210802
  Transmission Date: 20211014
  Serious: Yes (Death, Hospitalization, Other)
  Sender: FDA-Public Use
  Company Number: US-ASTRAZENECA-2021A648787

PATIENT
  Age: 79 Year
  Sex: Female

DRUGS (50)
  1. PREVACID [Suspect]
     Active Substance: LANSOPRAZOLE
     Route: 065
     Dates: start: 20071016
  2. PROTONIX [Suspect]
     Active Substance: PANTOPRAZOLE SODIUM
     Indication: GASTROOESOPHAGEAL REFLUX DISEASE
     Route: 065
     Dates: start: 2005, end: 2014
  3. METOPROLOL. [Concomitant]
     Active Substance: METOPROLOL
     Indication: HYPERTENSION
     Dates: start: 2007, end: 2017
  4. INSULIN R [Concomitant]
  5. AMLODIPINE BESYLATE. [Concomitant]
     Active Substance: AMLODIPINE BESYLATE
  6. TIMOLOL. [Concomitant]
     Active Substance: TIMOLOL
  7. NAPROXEN. [Concomitant]
     Active Substance: NAPROXEN
  8. PROPOFOL. [Concomitant]
     Active Substance: PROPOFOL
  9. FAMOTIDINE. [Concomitant]
     Active Substance: FAMOTIDINE
  10. REGLAN [Concomitant]
     Active Substance: METOCLOPRAMIDE HYDROCHLORIDE
     Dates: start: 20071016
  11. NIFEDIPINE. [Concomitant]
     Active Substance: NIFEDIPINE
  12. MONTELUKAST [Concomitant]
     Active Substance: MONTELUKAST SODIUM
  13. ZOFRAN [Concomitant]
     Active Substance: ONDANSETRON HYDROCHLORIDE
  14. VANCOMYCIN [Concomitant]
     Active Substance: VANCOMYCIN
  15. PREVACID [Suspect]
     Active Substance: LANSOPRAZOLE
     Route: 065
     Dates: start: 2005, end: 2014
  16. PROTONIX [Suspect]
     Active Substance: PANTOPRAZOLE SODIUM
     Indication: GASTROOESOPHAGEAL REFLUX DISEASE
     Dosage: GENERIC
     Route: 065
     Dates: start: 2008
  17. METFORMIN [Concomitant]
     Active Substance: METFORMIN HYDROCHLORIDE
     Indication: DIABETES MELLITUS
     Dates: start: 2003, end: 2017
  18. GLIPIZIDE. [Concomitant]
     Active Substance: GLIPIZIDE
     Indication: DIABETES MELLITUS
     Dates: start: 2008, end: 2017
  19. HYDROXYZINE [Concomitant]
     Active Substance: HYDROXYZINE HYDROCHLORIDE
     Indication: MULTIPLE ALLERGIES
     Dates: start: 2003, end: 2007
  20. SYNTHROID [Concomitant]
     Active Substance: LEVOTHYROXINE SODIUM
  21. CYCLOBENZAPR [Concomitant]
     Active Substance: CYCLOBENZAPRINE
     Dates: start: 20040720
  22. LIPITOR [Concomitant]
     Active Substance: ATORVASTATIN CALCIUM
     Dates: start: 20041215
  23. CLONIDINE. [Concomitant]
     Active Substance: CLONIDINE
  24. PRINCIPEN [Concomitant]
     Active Substance: AMPICILLIN TRIHYDRATE
  25. SIMETHICONE (DIMETHICONE) [Concomitant]
     Active Substance: DIMETHICONE
  26. NEXIUM [Suspect]
     Active Substance: ESOMEPRAZOLE MAGNESIUM
     Route: 048
     Dates: start: 20071016
  27. TRAMADOL. [Concomitant]
     Active Substance: TRAMADOL
     Indication: PAIN
     Dates: start: 2011, end: 2014
  28. PROAIR HFA [Concomitant]
     Active Substance: ALBUTEROL SULFATE
  29. DONEPEZIL. [Concomitant]
     Active Substance: DONEPEZIL
     Indication: DEMENTIA ALZHEIMER^S TYPE
     Dates: start: 2015, end: 2017
  30. NORVASC [Concomitant]
     Active Substance: AMLODIPINE BESYLATE
     Dates: start: 20071016
  31. MELOXICAM. [Concomitant]
     Active Substance: MELOXICAM
  32. BENICAR [Concomitant]
     Active Substance: OLMESARTAN MEDOXOMIL
  33. PREVACID 24 HR [Suspect]
     Active Substance: LANSOPRAZOLE
     Route: 065
     Dates: start: 2005, end: 2014
  34. LISINOPRIL. [Concomitant]
     Active Substance: LISINOPRIL
     Indication: HYPERTENSION
     Dates: start: 2003, end: 2017
  35. VICTOZA [Concomitant]
     Active Substance: LIRAGLUTIDE
  36. AUGMENTIN [Concomitant]
     Active Substance: AMOXICILLIN\CLAVULANATE POTASSIUM
  37. LABETALOL [Concomitant]
     Active Substance: LABETALOL\LABETALOL HYDROCHLORIDE
  38. MIDAZOLAM. [Concomitant]
     Active Substance: MIDAZOLAM
  39. PROTONIX [Suspect]
     Active Substance: PANTOPRAZOLE SODIUM
     Indication: GASTROOESOPHAGEAL REFLUX DISEASE
     Dosage: GENERIC
     Route: 065
     Dates: start: 2012, end: 2014
  40. HYDROCHLOROTHIAZIDE. [Concomitant]
     Active Substance: HYDROCHLOROTHIAZIDE
     Indication: HYPERTENSION
     Dates: start: 2013, end: 2017
  41. METOCLOPRAMIDE. [Concomitant]
     Active Substance: METOCLOPRAMIDE
     Dates: start: 20030512
  42. PROMETHAZINE [Concomitant]
     Active Substance: PROMETHAZINE HYDROCHLORIDE
  43. ONDANSETRON [Concomitant]
     Active Substance: ONDANSETRON
  44. ZOLPIDEM TARTRATE. [Concomitant]
     Active Substance: ZOLPIDEM TARTRATE
  45. FENTANYL. [Concomitant]
     Active Substance: FENTANYL
  46. VASOPRESSIN. [Concomitant]
     Active Substance: VASOPRESSIN
  47. NEXIUM [Suspect]
     Active Substance: ESOMEPRAZOLE MAGNESIUM
     Route: 048
     Dates: start: 2005, end: 2014
  48. LEVOTHYROXINE. [Concomitant]
     Active Substance: LEVOTHYROXINE
     Dates: start: 20071016
  49. PROPACET [Concomitant]
     Active Substance: ACETAMINOPHEN\PROPOXYPHENE NAPSYLATE
  50. DOXYCYCLINE HYCLATE. [Concomitant]
     Active Substance: DOXYCYCLINE HYCLATE

REACTIONS (7)
  - Acute kidney injury [Unknown]
  - Chronic hepatic failure [Fatal]
  - Renal failure [Unknown]
  - Sepsis [Fatal]
  - Respiratory failure [Fatal]
  - End stage renal disease [Fatal]
  - Chronic kidney disease [Unknown]

NARRATIVE: CASE EVENT DATE: 2016
